FAERS Safety Report 6510601-2 (Version None)
Quarter: 2009Q4

REPORT INFORMATION
  Report Type: 
  Country: None (occurrence: None)
  Receive Date: 20091222
  Receipt Date: 20091103
  Transmission Date: 20100525
  Serious: No
  Sender: FDA-Public Use
  Company Number: US-ASTRAZENECA-2009SE24245

PATIENT
  Age: 40 Year
  Sex: Female
  Weight: 72.6 kg

DRUGS (14)
  1. CRESTOR [Suspect]
     Indication: BLOOD CHOLESTEROL
     Route: 048
  2. CRESTOR [Suspect]
     Indication: BLOOD TRIGLYCERIDES
     Route: 048
  3. CRESTOR [Suspect]
     Route: 048
  4. CRESTOR [Suspect]
     Route: 048
  5. LISINOPRIL [Concomitant]
     Indication: HYPERTENSION
  6. HYZAAR [Concomitant]
     Indication: HYPERTENSION
  7. PLAVIX [Concomitant]
  8. PLETAL [Concomitant]
     Indication: INTERMITTENT CLAUDICATION
  9. ASPIRIN [Concomitant]
  10. ALLOPURINOL [Concomitant]
     Indication: BLOOD URIC ACID
  11. ZEBETA [Concomitant]
     Indication: HYPERTENSION
  12. LOVAZA [Concomitant]
     Indication: BLOOD TRIGLYCERIDES
  13. TEKTURNA [Concomitant]
     Indication: HYPERTENSION
  14. CARDIZEM [Concomitant]

REACTIONS (1)
  - DYSGEUSIA [None]
